FAERS Safety Report 21390944 (Version 1)
Quarter: 2022Q3

REPORT INFORMATION
  Report Type: Spontaneous
  Country: US (occurrence: None)
  Receive Date: 20220927
  Receipt Date: 20220927
  Transmission Date: 20221027
  Serious: Yes (Life-Threatening)
  Sender: FDA-Public Use
  Company Number: None

PATIENT
  Age: 65 Year
  Sex: Female
  Weight: 56.3 kg

DRUGS (2)
  1. METHADONE [Suspect]
     Active Substance: METHADONE HYDROCHLORIDE
     Indication: Drug withdrawal syndrome
     Dosage: FREQUENCY : DAILY;?
     Route: 048
     Dates: start: 20220827, end: 20220829
  2. ZIPRASIDONE [Suspect]
     Active Substance: ZIPRASIDONE
     Dosage: FREQUENCY : DAILY;?
     Route: 048
     Dates: start: 20220826, end: 20220829

REACTIONS (11)
  - Torsade de pointes [None]
  - Subdural haematoma [None]
  - Traumatic liver injury [None]
  - Rib fracture [None]
  - Fall [None]
  - Injury [None]
  - Loss of consciousness [None]
  - Therapy interrupted [None]
  - Blood potassium decreased [None]
  - Electrocardiogram QT prolonged [None]
  - Ventricular tachycardia [None]

NARRATIVE: CASE EVENT DATE: 20220829
